FAERS Safety Report 9924347 (Version 2)
Quarter: 2014Q1

REPORT INFORMATION
  Report Type: Spontaneous
  Country: FR (occurrence: FR)
  Receive Date: 20140226
  Receipt Date: 20140226
  Transmission Date: 20141002
  Serious: Yes (Other)
  Sender: FDA-Public Use
  Company Number: FR-ASTRAZENECA-2014SE08661

PATIENT
  Age: 583 Month
  Sex: Male
  Weight: 100 kg

DRUGS (3)
  1. XEROQUEL [Suspect]
     Indication: DEPRESSION
     Route: 048
     Dates: start: 201211
  2. VENLAFAXINE [Concomitant]
     Route: 048
  3. VENLAFAXINE [Concomitant]
     Route: 048
     Dates: start: 2006

REACTIONS (2)
  - Hyposideraemia [Unknown]
  - Hypochromic anaemia [Recovered/Resolved]
